FAERS Safety Report 18386675 (Version 19)
Quarter: 2025Q2

REPORT INFORMATION
  Report Type: Report from Study
  Country: US (occurrence: US)
  Receive Date: 20201015
  Receipt Date: 20250618
  Transmission Date: 20250717
  Serious: Yes (Hospitalization, Other)
  Sender: TAKEDA
  Company Number: US-SHIRE-US202033391

PATIENT
  Sex: Female
  Weight: 87 kg

DRUGS (34)
  1. HUMAN IMMUNOGLOBULIN G [Suspect]
     Active Substance: HUMAN IMMUNOGLOBULIN G
     Indication: Immunodeficiency common variable
     Dosage: 10 GRAM, 1/WEEK
  2. TOBRAMYCIN [Suspect]
     Active Substance: TOBRAMYCIN
     Indication: Product used for unknown indication
  3. DIPHENHYDRAMINE [Concomitant]
     Active Substance: DIPHENHYDRAMINE
  4. BUPROPION [Concomitant]
     Active Substance: BUPROPION
  5. EPINEPHRINE [Concomitant]
     Active Substance: EPINEPHRINE
  6. SYNTHROID [Concomitant]
     Active Substance: LEVOTHYROXINE SODIUM
  7. PREDNISONE [Concomitant]
     Active Substance: PREDNISONE
  8. CEFDINIR [Concomitant]
     Active Substance: CEFDINIR
  9. SPIRONOLACTONE [Concomitant]
     Active Substance: SPIRONOLACTONE
  10. METHOTREXATE [Concomitant]
     Active Substance: METHOTREXATE
  11. MORPHINE SULFATE [Concomitant]
     Active Substance: MORPHINE SULFATE
  12. HYDROXYCHLOROQUINE SULFATE [Concomitant]
     Active Substance: HYDROXYCHLOROQUINE SULFATE
  13. PERCOCET [Concomitant]
     Active Substance: ACETAMINOPHEN\OXYCODONE HYDROCHLORIDE
  14. VITAMIN D [Concomitant]
     Active Substance: VITAMIN D NOS
  15. AMBIEN [Concomitant]
     Active Substance: ZOLPIDEM TARTRATE
  16. FOLIC ACID [Concomitant]
     Active Substance: FOLIC ACID
  17. LEXAPRO [Concomitant]
     Active Substance: ESCITALOPRAM OXALATE
  18. SIMVASTATIN [Concomitant]
     Active Substance: SIMVASTATIN
  19. ALPRAZOLAM [Concomitant]
     Active Substance: ALPRAZOLAM
  20. REQUIP [Concomitant]
     Active Substance: ROPINIROLE HYDROCHLORIDE
  21. ALBUTEROL SULFATE [Concomitant]
     Active Substance: ALBUTEROL SULFATE
  22. IBUPROFEN [Concomitant]
     Active Substance: IBUPROFEN
  23. AMLODIPINE [Concomitant]
     Active Substance: AMLODIPINE BESYLATE
  24. AMLODIPINE BESYLATE [Concomitant]
     Active Substance: AMLODIPINE BESYLATE
  25. POTASSIUM CHLORIDE [Concomitant]
     Active Substance: POTASSIUM CHLORIDE
  26. VITAMIN D3 [Concomitant]
     Active Substance: CHOLECALCIFEROL
  27. TRAZODONE HCL [Concomitant]
     Active Substance: TRAZODONE HYDROCHLORIDE
  28. TRAZODONE [Concomitant]
     Active Substance: TRAZODONE HYDROCHLORIDE
  29. AZITHROMYCIN [Concomitant]
     Active Substance: AZITHROMYCIN
  30. ALBUTEROL SULFATE [Concomitant]
     Active Substance: ALBUTEROL SULFATE
  31. ALBUTEROL [Concomitant]
     Active Substance: ALBUTEROL
  32. MORPHINE [Concomitant]
     Active Substance: MORPHINE
  33. HYDROXYCHLOROQUINE [Concomitant]
     Active Substance: HYDROXYCHLOROQUINE
  34. DIPHENHYDRAMINE HYDROCHLORIDE [Concomitant]
     Active Substance: DIPHENHYDRAMINE HYDROCHLORIDE

REACTIONS (29)
  - COVID-19 [Unknown]
  - Pneumonia [Unknown]
  - Memory impairment [Unknown]
  - Rheumatoid arthritis [Unknown]
  - Osteomyelitis [Not Recovered/Not Resolved]
  - Renal disorder [Unknown]
  - Renal failure [Unknown]
  - Skin ulcer [Unknown]
  - Weight fluctuation [Unknown]
  - Illness [Unknown]
  - Tooth abscess [Not Recovered/Not Resolved]
  - Weight increased [Unknown]
  - Paranasal sinus discomfort [Recovering/Resolving]
  - Eye infection staphylococcal [Recovering/Resolving]
  - Urine output decreased [Recovering/Resolving]
  - Dehydration [Recovering/Resolving]
  - Peripheral venous disease [Unknown]
  - Product dose omission issue [Unknown]
  - Product dose omission in error [Unknown]
  - Arthritis [Unknown]
  - Cardiac disorder [Unknown]
  - Thyroid disorder [Unknown]
  - Upper respiratory tract infection [Not Recovered/Not Resolved]
  - Sinusitis [Unknown]
  - Eye swelling [Recovering/Resolving]
  - Infusion site reaction [Unknown]
  - Malaise [Recovering/Resolving]
  - Dyspnoea [Recovering/Resolving]
  - Fatigue [Unknown]
